FAERS Safety Report 9103866 (Version 3)
Quarter: 2013Q1

REPORT INFORMATION
  Report Type: Spontaneous
  Country: US (occurrence: US)
  Receive Date: 20130219
  Receipt Date: 20130307
  Transmission Date: 20140127
  Serious: Yes (Life-Threatening, Hospitalization)
  Sender: FDA-Public Use
  Company Number: US-JNJFOC-20130205843

PATIENT
  Sex: Female
  Weight: 32.21 kg

DRUGS (1)
  1. EXTRA STRENGTH TYLENOL [Suspect]
     Indication: PYREXIA
     Dosage: 500MG/ TABLET, 2 TABLETS 4 DOSES IN 24 HOURS
     Route: 048
     Dates: start: 20130117

REACTIONS (7)
  - Hepatotoxicity [Unknown]
  - Overdose [Unknown]
  - Hepatic enzyme increased [Recovering/Resolving]
  - International normalised ratio increased [Unknown]
  - Haemorrhage [Unknown]
  - Vomiting [Unknown]
  - Abdominal pain [Unknown]
